FAERS Safety Report 11183992 (Version 1)
Quarter: 2015Q2

REPORT INFORMATION
  Report Type: Spontaneous
  Country: CN (occurrence: CN)
  Receive Date: 20150612
  Receipt Date: 20150612
  Transmission Date: 20150821
  Serious: Yes (Death)
  Sender: FDA-Public Use
  Company Number: CN-CIPLA LTD.-2015CN04627

PATIENT

DRUGS (2)
  1. PACLITAXEL. [Suspect]
     Active Substance: PACLITAXEL
     Indication: NON-SMALL CELL LUNG CANCER
     Dosage: 175 MG/M2 ON DAY 1 OF EACH 3-WEEK CYCLE FOR UP TO SIX CYCLES
     Route: 042
  2. CARBOPLATIN. [Suspect]
     Active Substance: CARBOPLATIN
     Indication: NON-SMALL CELL LUNG CANCER
     Dosage: 6 AUC, ON DAY 1 OF EACH 3-WEEK CYCLE FOR UP TO SIX CYCLES
     Route: 042

REACTIONS (1)
  - Multi-organ failure [Fatal]
